FAERS Safety Report 7197680-7 (Version None)
Quarter: 2010Q4

REPORT INFORMATION
  Report Type: 
  Country: None (occurrence: None)
  Receive Date: 20101227
  Receipt Date: 20101214
  Transmission Date: 20110411
  Serious: No
  Sender: FDA-Public Use
  Company Number: US-ELI_LILLY_AND_COMPANY-US201011001562

PATIENT
  Sex: Female

DRUGS (13)
  1. FORTEO [Suspect]
     Indication: OSTEOPOROSIS
     Dosage: 20 UG, DAILY (1/D)
     Route: 058
     Dates: start: 20090812
  2. GABAPENTIN [Concomitant]
  3. OXYCONTIN [Concomitant]
     Dosage: 2 D/F, DAILY (1/D)
  4. MULTIVITAMIN [Concomitant]
  5. LASIX [Concomitant]
     Dosage: UNK, UNKNOWN
     Route: 065
  6. NEURONTIN [Concomitant]
     Dosage: UNK, UNKNOWN
     Route: 065
  7. PERCOCET [Concomitant]
     Dosage: UNK, UNKNOWN
     Route: 065
  8. NAPROSYN [Concomitant]
     Dosage: UNK, UNKNOWN
     Route: 065
  9. VITAMIN D3 [Concomitant]
     Dosage: UNK, UNKNOWN
     Route: 065
  10. CALCIUM [Concomitant]
     Dosage: UNK, UNKNOWN
     Route: 065
  11. FERROUS SULFATE [Concomitant]
     Dosage: UNK, UNKNOWN
     Route: 065
  12. FISH OIL [Concomitant]
     Dosage: UNK, UNKNOWN
     Route: 065
  13. FIBRODERM [Concomitant]
     Dosage: UNK, UNKNOWN
     Route: 065

REACTIONS (4)
  - MUSCULOSKELETAL DISCOMFORT [None]
  - OEDEMA PERIPHERAL [None]
  - PAIN [None]
  - WEIGHT INCREASED [None]
